FAERS Safety Report 5353443-6 (Version None)
Quarter: 2007Q2

REPORT INFORMATION
  Report Type: 
  Country: None (occurrence: None)
  Receive Date: 20070612
  Receipt Date: 20070601
  Transmission Date: 20071010
  Serious: Yes (Hospitalization)
  Sender: FDA-Public Use
  Company Number: PHEH2007US08159

PATIENT
  Age: 73 Year
  Sex: Female

DRUGS (6)
  1. PLAVIX [Concomitant]
  2. PROTONIX [Concomitant]
  3. ASPIRIN [Concomitant]
  4. FISH OIL [Concomitant]
  5. CALTRATE [Concomitant]
  6. ZELNORM [Suspect]
     Indication: CONSTIPATION
     Dosage: 6 MG, QD
     Route: 048
     Dates: start: 20060803, end: 20070301

REACTIONS (8)
  - CARDIAC DISORDER [None]
  - CARDIAC OPERATION [None]
  - CHEST PAIN [None]
  - CORONARY ARTERIAL STENT INSERTION [None]
  - CORONARY ARTERY OCCLUSION [None]
  - DIARRHOEA [None]
  - DYSPNOEA [None]
  - HEART RATE IRREGULAR [None]
